FAERS Safety Report 25779223 (Version 1)
Quarter: 2025Q3

REPORT INFORMATION
  Report Type: Spontaneous
  Country: TR (occurrence: TR)
  Receive Date: 20250909
  Receipt Date: 20250909
  Transmission Date: 20251020
  Serious: Yes (Other)
  Sender: GILEAD
  Company Number: TR-GILEAD-2025-0727419

PATIENT
  Sex: Female

DRUGS (3)
  1. SACITUZUMAB GOVITECAN-HZIY [Suspect]
     Active Substance: SACITUZUMAB GOVITECAN-HZIY
     Indication: Breast cancer metastatic
     Route: 065
     Dates: start: 20241102, end: 20250602
  2. DOCETAXEL [Concomitant]
     Active Substance: DOCETAXEL
     Dates: start: 20250701
  3. CAPECITABINE [Concomitant]
     Active Substance: CAPECITABINE
     Dates: start: 20250701

REACTIONS (1)
  - Disease progression [Unknown]

NARRATIVE: CASE EVENT DATE: 20250602
